FAERS Safety Report 4480670-2 (Version None)
Quarter: 2004Q4

REPORT INFORMATION
  Report Type: 
  Country: None (occurrence: None)
  Receive Date: 20041021
  Receipt Date: 20041012
  Transmission Date: 20050328
  Serious: Yes (Other)
  Sender: FDA-Public Use
  Company Number: SE-JNJFOC-20040808914

PATIENT
  Age: 72 Year
  Sex: Male

DRUGS (7)
  1. REMICADE [Suspect]
     Route: 042
  2. REMICADE [Suspect]
     Indication: RHEUMATOID ARTHRITIS
     Route: 042
  3. WARAN [Interacting]
     Route: 049
  4. WARAN [Interacting]
     Route: 049
  5. WARAN [Interacting]
     Route: 049
  6. WARAN [Interacting]
     Route: 049
  7. WARAN [Interacting]
     Indication: DEEP VEIN THROMBOSIS
     Route: 049

REACTIONS (4)
  - DEEP VEIN THROMBOSIS [None]
  - DRUG INTERACTION [None]
  - INTERNATIONAL NORMALISED RATIO ABNORMAL [None]
  - PROTHROMBIN LEVEL DECREASED [None]
